FAERS Safety Report 5074211-9 (Version None)
Quarter: 2006Q3

REPORT INFORMATION
  Report Type: 
  Country: None (occurrence: None)
  Receive Date: 20060803
  Receipt Date: 20060720
  Transmission Date: 20061208
  Serious: Yes (Other)
  Sender: FDA-Public Use
  Company Number: 2006S1000158

PATIENT
  Age: 43 Year
  Sex: Female
  Weight: 77.1115 kg

DRUGS (1)
  1. SORIATANE [Suspect]
     Indication: PSORIASIS
     Dosage: 10 MG; PO
     Route: 048
     Dates: start: 20040901, end: 20050201

REACTIONS (8)
  - ALOPECIA [None]
  - DRY EYE [None]
  - DRY SKIN [None]
  - KERATOCONUS [None]
  - LIP DRY [None]
  - OCULAR NEOPLASM [None]
  - ONYCHOCLASIS [None]
  - VISUAL DISTURBANCE [None]
